FAERS Safety Report 15593428 (Version 1)
Quarter: 2018Q4

REPORT INFORMATION
  Report Type: Spontaneous
  Country: US (occurrence: US)
  Receive Date: 20181107
  Receipt Date: 20181107
  Transmission Date: 20190205
  Serious: No
  Sender: FDA-Public Use
  Company Number: US-OTSUKA-2018_032718

PATIENT
  Age: 43 Year
  Sex: Female
  Weight: 139.68 kg

DRUGS (3)
  1. NUEDEXTA [Suspect]
     Active Substance: DEXTROMETHORPHAN HYDROBROMIDE\QUINIDINE SULFATE
     Indication: CRANIOCEREBRAL INJURY
     Dosage: 1 DF, BID
     Route: 048
     Dates: start: 201802, end: 201805
  2. KLONOPIN [Suspect]
     Active Substance: CLONAZEPAM
     Indication: PRODUCT USED FOR UNKNOWN INDICATION
     Dosage: 3 MG, QD
     Route: 065
  3. KLONOPIN [Suspect]
     Active Substance: CLONAZEPAM
     Dosage: 0.5 MG, QD (BEFORE BED TIME)
     Route: 065
     Dates: start: 2018

REACTIONS (9)
  - Delusion [Unknown]
  - Muscle spasms [Unknown]
  - Pyrexia [Unknown]
  - Muscle twitching [Unknown]
  - Weight decreased [Recovering/Resolving]
  - Dizziness [Unknown]
  - Product use in unapproved indication [Unknown]
  - Lethargy [Unknown]
  - Vomiting projectile [Recovered/Resolved]

NARRATIVE: CASE EVENT DATE: 2018
